FAERS Safety Report 7556480-6 (Version None)
Quarter: 2011Q2

REPORT INFORMATION
  Report Type: 
  Country: None (occurrence: None)
  Receive Date: 20110610
  Receipt Date: 20110525
  Transmission Date: 20111010
  Serious: Yes (Death, Hospitalization)
  Sender: FDA-Public Use
  Company Number: TCI2011A02356

PATIENT
  Age: 77 Year
  Sex: Male

DRUGS (22)
  1. GASTROM (ECABET MONOSODIUM) [Concomitant]
  2. IRBETAN (IRBESARTAN) [Concomitant]
  3. AMLODIPINE BESYLATE [Concomitant]
  4. IRBESARTAN [Concomitant]
  5. ACTOS [Suspect]
     Dosage: 15 MG (15 MG, 1 IN 1 D) 30 MG (30 MG, 1 D) 15 MG (15 MG, 1 IN 1 D)
     Route: 048
     Dates: start: 20030124, end: 20030423
  6. ACTOS [Suspect]
     Dosage: 15 MG (15 MG, 1 IN 1 D) 30 MG (30 MG, 1 D) 15 MG (15 MG, 1 IN 1 D)
     Route: 048
     Dates: start: 20030424, end: 20030718
  7. ACTOS [Suspect]
     Dosage: 15 MG (15 MG, 1 IN 1 D) 30 MG (30 MG, 1 D) 15 MG (15 MG, 1 IN 1 D)
     Route: 048
     Dates: start: 20030719, end: 20110116
  8. LANTUS [Concomitant]
  9. DOXAZOSIN MESYLATE [Concomitant]
  10. METFORMIN HYDROCHLORIDE [Concomitant]
  11. ALESION (EPINASTINE HYDROCHLORIDE) [Concomitant]
  12. CARDENALIN (DOXAZOSIN MESYLATE) [Concomitant]
  13. ZANTAC [Concomitant]
  14. LISINOPRIL [Concomitant]
  15. AMLODIPINE BESYLATE [Concomitant]
  16. UNISIA COMBINATION TABLETS HD (CANDESARTAN CILEXETIL, AMLODIPINE BESIL [Concomitant]
  17. BLOPRESS (CANDESARTAN CILEXETIL) [Concomitant]
  18. GLYBURIDE [Concomitant]
  19. PNEUMOVAX 23 [Concomitant]
  20. OMEPRAZOLE [Concomitant]
  21. LOSARTAN POTASSIUM [Concomitant]
  22. LANTUS SOLOSTAR 9INSULIN GLARGINE) [Concomitant]

REACTIONS (12)
  - BLOOD GLUCOSE INCREASED [None]
  - CAROTID ARTERY STENOSIS [None]
  - BLOOD PRESSURE SYSTOLIC INCREASED [None]
  - REFLUX OESOPHAGITIS [None]
  - GLYCOSYLATED HAEMOGLOBIN INCREASED [None]
  - INTERSTITIAL LUNG DISEASE [None]
  - RHINITIS [None]
  - HEPATIC STEATOSIS [None]
  - HIATUS HERNIA [None]
  - DUODENAL POLYP [None]
  - GASTRITIS EROSIVE [None]
  - GASTRITIS HAEMORRHAGIC [None]
